FAERS Safety Report 5003398-9 (Version None)
Quarter: 2006Q2

REPORT INFORMATION
  Report Type: 
  Country: None (occurrence: None)
  Receive Date: 20060512
  Receipt Date: 20060427
  Transmission Date: 20061013
  Serious: Yes (Death)
  Sender: FDA-Public Use
  Company Number: COT_0456_2006

PATIENT
  Age: 72 Year
  Sex: Male
  Weight: 103.4201 kg

DRUGS (20)
  1. VENTAVIS [Suspect]
     Indication: PULMONARY HYPERTENSION
     Dosage: 5 MCG 6XD IH
     Route: 055
     Dates: start: 20060207, end: 20060228
  2. VENTAVIS [Suspect]
     Indication: PULMONARY HYPERTENSION
     Dosage: 2.5 MCG 6XD IH
     Route: 055
     Dates: end: 20060306
  3. COUMADIN [Suspect]
  4. PLAVIX [Suspect]
     Dates: end: 20060303
  5. ASPIRIN [Suspect]
     Dosage: 81 MG PO
     Route: 048
     Dates: end: 20060223
  6. ASPIRIN [Suspect]
     Dosage: 81 MG PO
     Route: 048
     Dates: start: 20060303
  7. TRACLEER [Concomitant]
  8. LIPITOR [Concomitant]
  9. LASIX [Concomitant]
  10. VITAMIN E [Concomitant]
  11. HYDROCHLOROTHIAZIDE [Concomitant]
  12. GLUCOPHAGE [Concomitant]
  13. TOPROL-XL [Concomitant]
  14. DIGOXIN [Concomitant]
  15. PAMELOR [Concomitant]
  16. LANTUS [Concomitant]
  17. ZESTRIL [Concomitant]
  18. K-DUR 10 [Concomitant]
  19. DETROL [Concomitant]
  20. DITROPAN [Concomitant]

REACTIONS (6)
  - COUGH [None]
  - DIZZINESS [None]
  - HAEMOPTYSIS [None]
  - SUDDEN DEATH [None]
  - THROAT IRRITATION [None]
  - TREATMENT NONCOMPLIANCE [None]
